FAERS Safety Report 4971794-1 (Version None)
Quarter: 2006Q2

REPORT INFORMATION
  Report Type: 
  Country: None (occurrence: None)
  Receive Date: 20060407
  Receipt Date: 20060330
  Transmission Date: 20061013
  Serious: Yes (Hospitalization)
  Sender: FDA-Public Use
  Company Number: 221126

PATIENT
  Age: 82 Year
  Sex: Male

DRUGS (3)
  1. RITUXAN [Suspect]
     Indication: NON-HODGKIN'S LYMPHOMA
     Dosage: 375 MG/M2, 1/WEEK,
     Dates: start: 20051108, end: 20051229
  2. DILTIAZEM HCL [Concomitant]
  3. PROTONIX [Concomitant]

REACTIONS (3)
  - BONE MARROW FAILURE [None]
  - NEUTROPENIA [None]
  - SEPSIS [None]
